FAERS Safety Report 11671211 (Version 1)
Quarter: 2015Q4

REPORT INFORMATION
  Report Type: Spontaneous
  Country: US (occurrence: US)
  Receive Date: 20151027
  Receipt Date: 20151027
  Transmission Date: 20160304
  Serious: No
  Sender: FDA-Public Use
  Company Number: US-ELI_LILLY_AND_COMPANY-US201006005058

PATIENT
  Sex: Female

DRUGS (1)
  1. FORTEO [Suspect]
     Active Substance: TERIPARATIDE
     Indication: OSTEOARTHRITIS
     Dosage: 20 UG, DAILY (1/D)
     Route: 065

REACTIONS (4)
  - Toothache [Unknown]
  - Pulmonary congestion [Unknown]
  - Muscle spasms [Unknown]
  - Rhinorrhoea [Unknown]
